FAERS Safety Report 18606443 (Version 1)
Quarter: 2020Q4

REPORT INFORMATION
  Report Type: Spontaneous
  Country: GB (occurrence: GB)
  Receive Date: 20201211
  Receipt Date: 20201211
  Transmission Date: 20210114
  Serious: Yes (Other)
  Sender: FDA-Public Use
  Company Number: GB-ALLERGAN-2046764US

PATIENT
  Sex: Female
  Weight: 60.3 kg

DRUGS (6)
  1. ACULAR [Suspect]
     Active Substance: KETOROLAC TROMETHAMINE
     Dosage: 1 GTT, TID
     Route: 047
  2. ACULAR [Suspect]
     Active Substance: KETOROLAC TROMETHAMINE
     Indication: IRITIS
     Dosage: 1 GTT, BID
     Route: 047
  3. LOSARTAN. [Concomitant]
     Active Substance: LOSARTAN
     Indication: HYPERTENSION
     Dosage: UNK
  4. ROSUVASTATIN. [Concomitant]
     Active Substance: ROSUVASTATIN
     Indication: BLOOD CHOLESTEROL INCREASED
     Dosage: 5 MG 4 TIMES PER WEEK
  5. ACULAR [Suspect]
     Active Substance: KETOROLAC TROMETHAMINE
     Dosage: 1 GTT, QID
     Route: 047
     Dates: start: 201711
  6. ANTIHYPERTENSIVES [Concomitant]
     Active Substance: UNSPECIFIED INGREDIENT
     Indication: HYPERTENSION
     Dosage: UNK
     Dates: start: 2000

REACTIONS (6)
  - Off label use [Unknown]
  - Eye pain [Recovered/Resolved]
  - Dry eye [Not Recovered/Not Resolved]
  - Cataract [Unknown]
  - Product packaging issue [Unknown]
  - Ocular discomfort [Unknown]

NARRATIVE: CASE EVENT DATE: 2017
